FAERS Safety Report 5175622-3 (Version None)
Quarter: 2006Q4

REPORT INFORMATION
  Report Type: 
  Country: None (occurrence: None)
  Receive Date: 20061215
  Receipt Date: 20060627
  Transmission Date: 20070319
  Serious: No
  Sender: FDA-Public Use
  Company Number: US-AMGEN-KDL184550

PATIENT
  Sex: Male

DRUGS (3)
  1. ENBREL [Suspect]
     Indication: PSORIASIS
     Route: 058
     Dates: start: 20050204
  2. TOPRAL [Concomitant]
  3. LIPITOR [Concomitant]

REACTIONS (10)
  - BLOOD PRESSURE INCREASED [None]
  - CELLULITIS [None]
  - CONDITION AGGRAVATED [None]
  - DECREASED APPETITE [None]
  - DIZZINESS [None]
  - HEART RATE INCREASED [None]
  - NASAL CONGESTION [None]
  - PSORIASIS [None]
  - PYREXIA [None]
  - RHINORRHOEA [None]
